FAERS Safety Report 18078122 (Version 2)
Quarter: 2020Q3

REPORT INFORMATION
  Report Type: Spontaneous
  Country: US (occurrence: US)
  Receive Date: 20200728
  Receipt Date: 20200831
  Transmission Date: 20201103
  Serious: No
  Sender: FDA-Public Use
  Company Number: US-AMGEN-USASP2020118383

PATIENT
  Age: 70 Year
  Sex: Female

DRUGS (1)
  1. REPATHA [Suspect]
     Active Substance: EVOLOCUMAB
     Indication: PRODUCT USED FOR UNKNOWN INDICATION
     Dosage: 140 MILLIGRAM, Q2WK
     Route: 058
     Dates: start: 20200429, end: 20200721

REACTIONS (5)
  - Eye swelling [Recovered/Resolved]
  - Arthralgia [Not Recovered/Not Resolved]
  - Swelling [Recovered/Resolved]
  - Pruritus [Recovered/Resolved]
  - Lymphadenopathy [Recovered/Resolved]

NARRATIVE: CASE EVENT DATE: 20200429
